FAERS Safety Report 8050077 (Version 3)
Quarter: 2015Q4

REPORT INFORMATION
  Report Type: Spontaneous
  Country: US (occurrence: US)
  Receive Date: 20110722
  Receipt Date: 20151204
  Transmission Date: 20160305
  Serious: Yes (Other)
  Sender: FDA-Public Use
  Company Number: US-BAYER-2011-062445

PATIENT
  Age: 19 Year
  Sex: Female
  Weight: 63.49 kg

DRUGS (5)
  1. YAZ [Suspect]
     Active Substance: DROSPIRENONE\ETHINYL ESTRADIOL
     Indication: ACNE
     Dosage: UNK
     Route: 048
     Dates: start: 200805, end: 200809
  2. MULTIVITAMIN [Concomitant]
     Active Substance: VITAMINS
     Indication: SUPPLEMENTATION THERAPY
     Dosage: UNK
     Dates: start: 2007
  3. ZOVIRAX [Concomitant]
     Active Substance: ACYCLOVIR
  4. ADVIL [Concomitant]
     Active Substance: IBUPROFEN
  5. CEPHALEXIN. [Concomitant]
     Active Substance: CEPHALEXIN

REACTIONS (12)
  - Vision blurred [None]
  - Visual acuity reduced [None]
  - Retinal artery occlusion [None]
  - Visual impairment [None]
  - Visual field defect [None]
  - Deformity [None]
  - Injury [None]
  - Anxiety [None]
  - Ocular vascular disorder [None]
  - Pain [None]
  - Anhedonia [None]
  - Optic ischaemic neuropathy [None]

NARRATIVE: CASE EVENT DATE: 200808
